FAERS Safety Report 15235537 (Version 3)
Quarter: 2018Q4

REPORT INFORMATION
  Report Type: Spontaneous
  Country: US (occurrence: US)
  Receive Date: 20180803
  Receipt Date: 20181120
  Transmission Date: 20190204
  Serious: No
  Sender: FDA-Public Use
  Company Number: US-PFIZER INC-2018309205

PATIENT
  Age: 38 Year
  Sex: Female

DRUGS (2)
  1. RASUVO [Concomitant]
     Active Substance: METHOTREXATE SODIUM
     Dosage: 25 MG, WEEKLY
     Route: 058
  2. XELJANZ XR [Suspect]
     Active Substance: TOFACITINIB CITRATE
     Dosage: 11 MG, DAILY
     Dates: start: 201807

REACTIONS (8)
  - Condition aggravated [Not Recovered/Not Resolved]
  - Back pain [Unknown]
  - Fatigue [Unknown]
  - Dermatitis psoriasiform [Unknown]
  - Animal bite [Not Recovered/Not Resolved]
  - Wound [Not Recovered/Not Resolved]
  - Joint stiffness [Unknown]
  - Arthralgia [Not Recovered/Not Resolved]

NARRATIVE: CASE EVENT DATE: 201807
